FAERS Safety Report 21852824 (Version 1)
Quarter: 2023Q1

REPORT INFORMATION
  Report Type: Spontaneous
  Country: US (occurrence: US)
  Receive Date: 20230112
  Receipt Date: 20230112
  Transmission Date: 20230418
  Serious: Yes (Other)
  Sender: FDA-Public Use
  Company Number: US-SA-SAC20230111000904

PATIENT

DRUGS (1)
  1. LANTUS SOLOSTAR [Suspect]
     Active Substance: INSULIN GLARGINE
     Dosage: UNK

REACTIONS (10)
  - Venous injury [Unknown]
  - Arterial injury [Unknown]
  - Abdominal injury [Unknown]
  - Chest discomfort [Unknown]
  - Euphoric mood [Unknown]
  - Headache [Unknown]
  - Abdominal pain [Unknown]
  - Pain in extremity [Unknown]
  - Arterial stiffness [Unknown]
  - Malaise [Unknown]
